FAERS Safety Report 5159749-8 (Version None)
Quarter: 2006Q4

REPORT INFORMATION
  Report Type: 
  Country: None (occurrence: None)
  Receive Date: 20061129
  Receipt Date: 20051024
  Transmission Date: 20070319
  Serious: Yes (Other)
  Sender: FDA-Public Use
  Company Number: US-GLAXOSMITHKLINE-A0580692A

PATIENT
  Age: 31 Year
  Sex: Female
  Weight: 73.6 kg

DRUGS (2)
  1. WELLBUTRIN [Suspect]
     Indication: DEPRESSION
     Dosage: 100MG TWICE PER DAY
     Route: 048
  2. SYNTHROID [Concomitant]

REACTIONS (2)
  - ERYTHEMA MULTIFORME [None]
  - RASH [None]
